FAERS Safety Report 7608552-5 (Version None)
Quarter: 2011Q3

REPORT INFORMATION
  Report Type: 
  Country: None (occurrence: None)
  Receive Date: 20110714
  Receipt Date: 20110704
  Transmission Date: 20111222
  Serious: Yes (Hospitalization)
  Sender: FDA-Public Use
  Company Number: PHFR2011GB04156

PATIENT
  Sex: Female

DRUGS (6)
  1. VALPROATE SODIUM [Concomitant]
     Dosage: 2200 MG, DAILY
     Route: 048
  2. HYOSCINE HYDROCHLORIDE [Concomitant]
     Dosage: 600 UG, DAILY
  3. OXYBUTYNIN [Concomitant]
     Dosage: 10 MG, DAILY
     Route: 048
  4. CLOZAPINE [Suspect]
     Indication: SCHIZOPHRENIA
     Dosage: 275 MG, DAILY
     Route: 048
  5. CILAZAPRIL [Concomitant]
     Dosage: 5 MG, DAILY
     Route: 048
  6. CITALOPRAM HYDROBROMIDE [Concomitant]
     Dosage: 40 MG, DAILY
     Route: 048

REACTIONS (3)
  - LOWER RESPIRATORY TRACT INFECTION [None]
  - COUGH DECREASED [None]
  - SALIVARY HYPERSECRETION [None]
